FAERS Safety Report 4693736-9 (Version None)
Quarter: 2005Q2

REPORT INFORMATION
  Report Type: 
  Country: None (occurrence: None)
  Receive Date: 20050615
  Receipt Date: 20050602
  Transmission Date: 20051028
  Serious: Yes (Hospitalization)
  Sender: FDA-Public Use
  Company Number: WAES 0506DEU00036

PATIENT
  Age: 81 Year
  Sex: Female

DRUGS (1)
  1. COZAAR [Suspect]
     Indication: ESSENTIAL HYPERTENSION
     Dosage: 100 MG/DAILY, PO
     Route: 048
     Dates: start: 20040521

REACTIONS (2)
  - AMAUROSIS [None]
  - TEMPORAL ARTERITIS [None]
